FAERS Safety Report 21365300 (Version 2)
Quarter: 2022Q4

REPORT INFORMATION
  Report Type: Spontaneous
  Country: US (occurrence: US)
  Receive Date: 20220922
  Receipt Date: 20221006
  Transmission Date: 20230113
  Serious: No
  Sender: FDA-Public Use
  Company Number: US-BRISTOL-MYERS SQUIBB COMPANY-2022-110340

PATIENT
  Age: 72 Year
  Sex: Male

DRUGS (1)
  1. REVLIMID [Suspect]
     Active Substance: LENALIDOMIDE
     Indication: Diffuse large B-cell lymphoma
     Dosage: 1 CAPSULE, EVERY DAY FOR 21 DAYS OF 28 DAY CYCLE
     Route: 048
     Dates: start: 20220216

REACTIONS (2)
  - COVID-19 [Unknown]
  - Intentional product use issue [Unknown]
